FAERS Safety Report 22379420 (Version 2)
Quarter: 2023Q2

REPORT INFORMATION
  Report Type: Spontaneous
  Country: TR (occurrence: TR)
  Receive Date: 20230529
  Receipt Date: 20230623
  Transmission Date: 20230722
  Serious: Yes (Other)
  Sender: FDA-Public Use
  Company Number: TR-PFIZER INC-PV202300092610

PATIENT
  Age: 60 Year
  Sex: Female

DRUGS (1)
  1. BOSULIF [Suspect]
     Active Substance: BOSUTINIB MONOHYDRATE
     Indication: Chronic myeloid leukaemia
     Dosage: UNK
     Dates: start: 2020, end: 202305

REACTIONS (4)
  - Autoimmune disorder [Not Recovered/Not Resolved]
  - Rash erythematous [Not Recovered/Not Resolved]
  - Dry eye [Not Recovered/Not Resolved]
  - Dry mouth [Not Recovered/Not Resolved]
